FAERS Safety Report 6159006-7 (Version None)
Quarter: 2009Q2

REPORT INFORMATION
  Report Type: 
  Country: None (occurrence: None)
  Receive Date: 20090415
  Receipt Date: 20090331
  Transmission Date: 20091009
  Serious: Yes (Other)
  Sender: FDA-Public Use
  Company Number: VAL_00248_2009

PATIENT
  Sex: Female

DRUGS (5)
  1. EQUETRO [Suspect]
     Indication: DRUG USE FOR UNKNOWN INDICATION
     Dosage: (DF ORAL)
     Route: 048
  2. BIAXIN [Suspect]
     Indication: DRUG USE FOR UNKNOWN INDICATION
     Dosage: (DF ORAL)
     Route: 048
     Dates: start: 20090320, end: 20090301
  3. ADDERALL 10 [Concomitant]
  4. LAMICTAL [Concomitant]
  5. PAIN MEDICATION (UNSPECIFIED) [Concomitant]

REACTIONS (5)
  - DRUG DISPENSING ERROR [None]
  - DRUG INTERACTION [None]
  - FATIGUE [None]
  - MYALGIA [None]
  - WRONG DRUG ADMINISTERED [None]
